FAERS Safety Report 21996691 (Version 2)
Quarter: 2023Q2

REPORT INFORMATION
  Report Type: Spontaneous
  Country: US (occurrence: US)
  Receive Date: 20230215
  Receipt Date: 20230407
  Transmission Date: 20230722
  Serious: No
  Sender: FDA-Public Use
  Company Number: US-PFIZER INC-202300063802

PATIENT
  Age: 71 Year
  Sex: Female
  Weight: 58.06 kg

DRUGS (4)
  1. MENEST [Suspect]
     Active Substance: ESTROGENS, ESTERIFIED
     Indication: Hormone replacement therapy
     Dosage: 0.625 MG, DAILY (: 0.625MG PRESCRIBED EVERY DAY)
     Route: 048
     Dates: start: 201810
  2. MENEST [Suspect]
     Active Substance: ESTROGENS, ESTERIFIED
     Indication: Menopause
     Dosage: 0.625 MG, ALTERNATE DAY
     Route: 048
  3. PROVERA [Suspect]
     Active Substance: MEDROXYPROGESTERONE ACETATE
     Dosage: 2.5 MG, 1X/DAY
     Route: 048
  4. PROMETRIUM [Concomitant]
     Active Substance: PROGESTERONE
     Indication: Hormone therapy
     Dosage: UNK

REACTIONS (3)
  - Intentional product use issue [Unknown]
  - Off label use [Unknown]
  - Product use issue [Unknown]

NARRATIVE: CASE EVENT DATE: 20230115
